FAERS Safety Report 9070208 (Version 2)
Quarter: 2013Q3

REPORT INFORMATION
  Report Type: Report from Study
  Country: ES (occurrence: ES)
  Receive Date: 20130215
  Receipt Date: 20130819
  Transmission Date: 20140515
  Serious: Yes (Death, Life-Threatening, Hospitalization)
  Sender: FDA-Public Use
  Company Number: ES-TEVA-386855USA

PATIENT
  Age: 56 Year
  Sex: Male

DRUGS (33)
  1. BENDAMUSTINE [Suspect]
     Indication: PLASMA CELL MYELOMA
     Route: 042
     Dates: start: 20121026, end: 20121105
  2. BENDAMUSTINE [Suspect]
     Route: 042
     Dates: start: 20121115
  3. BENDAMUSTINE [Suspect]
     Route: 042
     Dates: start: 20121210
  4. BENDAMUSTINE [Suspect]
     Route: 042
     Dates: start: 20130103
  5. BORTEZOMIB [Suspect]
     Indication: PLASMA CELL MYELOMA
     Dates: start: 20120309
  6. BORTEZOMIB [Suspect]
     Dates: start: 20120528
  7. BORTEZOMIB [Suspect]
     Dates: start: 20120618
  8. BORTEZOMIB [Suspect]
     Dates: start: 20120709
  9. BORTEZOMIB [Suspect]
     Dates: start: 20120809
  10. BORTEZOMIB [Suspect]
     Dates: start: 20120910
  11. BORTEZOMIB [Suspect]
     Dates: start: 20121026
  12. BORTEZOMIB [Suspect]
     Dates: start: 20121115
  13. BORTEZOMIB [Suspect]
     Dates: start: 20121210
  14. BORTEZOMIB [Suspect]
     Dates: start: 20130103
  15. LENALIDOMIDE [Suspect]
     Indication: PLASMA CELL MYELOMA
     Dates: start: 20100426
  16. LENALIDOMIDE [Suspect]
     Dates: start: 20110511
  17. DEXAMETHASONE [Suspect]
     Indication: PLASMA CELL MYELOMA
     Dates: start: 20100426
  18. DEXAMETHASONE [Suspect]
     Dates: start: 20120319
  19. DEXAMETHASONE [Suspect]
     Dates: start: 20120528
  20. DEXAMETHASONE [Suspect]
     Dates: start: 20120618
  21. DEXAMETHASONE [Suspect]
     Dates: start: 20120709
  22. DEXAMETHASONE [Suspect]
     Dates: start: 20120809
  23. DEXAMETHASONE [Suspect]
     Dates: start: 20121026
  24. DEXAMETHASONE [Suspect]
     Dates: start: 20121115
  25. DEXAMETHASONE [Suspect]
     Dates: start: 20121210
  26. DEXAMETHASONE [Suspect]
     Dates: start: 20130103
  27. ADRIAMYCIN [Suspect]
     Indication: PLASMA CELL MYELOMA
     Dates: start: 20120319
  28. MELPHALAN [Suspect]
     Indication: PLASMA CELL MYELOMA
     Dates: start: 20120910
  29. PREDNISON [Suspect]
     Indication: PLASMA CELL MYELOMA
     Dates: start: 20120910
  30. ZOMETA [Concomitant]
     Dates: start: 20121029
  31. ZOMETA [Concomitant]
     Dates: start: 20121210
  32. ZOMETA [Concomitant]
     Dates: start: 20130107
  33. DUROGESIC [Concomitant]
     Dates: start: 20130115

REACTIONS (3)
  - Gastrointestinal haemorrhage [Fatal]
  - Plasma cell myeloma [Fatal]
  - Thrombocytopenia [Fatal]
